FAERS Safety Report 25359113 (Version 3)
Quarter: 2025Q3

REPORT INFORMATION
  Report Type: Report from Study
  Country: US (occurrence: US)
  Receive Date: 20250526
  Receipt Date: 20250723
  Transmission Date: 20251021
  Serious: Yes (Other)
  Sender: MALLINCKRODT
  Company Number: US-MALLINCKRODT-MNK202502806

PATIENT
  Age: 58 Year
  Sex: Female

DRUGS (3)
  1. CORTICOTROPIN [Suspect]
     Active Substance: CORTICOTROPIN
     Indication: Systemic lupus erythematosus
  2. CORTICOTROPIN [Suspect]
     Active Substance: CORTICOTROPIN
     Indication: Iridocyclitis
  3. CORTICOTROPIN [Suspect]
     Active Substance: CORTICOTROPIN
     Indication: Arteritis

REACTIONS (7)
  - Nephrolithiasis [Unknown]
  - Fall [Unknown]
  - Hidradenitis [Recovering/Resolving]
  - Contusion [Unknown]
  - Nerve injury [Unknown]
  - Joint instability [Unknown]
  - Fibrosis [Unknown]
